FAERS Safety Report 8329615-5 (Version None)
Quarter: 2012Q2

REPORT INFORMATION
  Report Type: 
  Country: None (occurrence: None)
  Receive Date: 20120502
  Receipt Date: 20120420
  Transmission Date: 20120825
  Serious: Yes (Other)
  Sender: FDA-Public Use
  Company Number: PHFR2012GB002527

PATIENT
  Sex: Female

DRUGS (1)
  1. ESTRADERM [Suspect]
     Dosage: 100, UNK
     Route: 062

REACTIONS (1)
  - BLOOD OESTROGEN DECREASED [None]
